FAERS Safety Report 6856148-5 (Version None)
Quarter: 2010Q3

REPORT INFORMATION
  Report Type: 
  Country: None (occurrence: None)
  Receive Date: 20100719
  Receipt Date: 20100707
  Transmission Date: 20110219
  Serious: Yes (Other)
  Sender: FDA-Public Use
  Company Number: PHHY2010BR19203

PATIENT
  Age: 46 Year
  Sex: Male
  Weight: 112 kg

DRUGS (3)
  1. DIOVAN AMLO [Suspect]
     Indication: HYPERTENSION
     Dosage: 80/5 MG, 1 TABLET DAILY
     Route: 048
  2. DIOVAN AMLO [Suspect]
     Dosage: 80/5 MG POSOLOGY (1 TABLET TWICE DAILY )
  3. ABLOK PLUS [Concomitant]
     Indication: HYPERTENSION
     Dosage: 50 MG
     Route: 048

REACTIONS (2)
  - BLOOD PRESSURE FLUCTUATION [None]
  - HYPERTENSION [None]
